FAERS Safety Report 7744273-6 (Version None)
Quarter: 2011Q3

REPORT INFORMATION
  Report Type: 
  Country: None (occurrence: None)
  Receive Date: 20110912
  Receipt Date: 20110902
  Transmission Date: 20111222
  Serious: Yes (Hospitalization)
  Sender: FDA-Public Use
  Company Number: NL-GENZYME-CLOF-1001777

PATIENT
  Sex: Male
  Weight: 85 kg

DRUGS (7)
  1. VINCRISTINE [Suspect]
     Indication: PNEUMONIA NECROTISING
  2. ADRIAMYCIN PFS [Suspect]
     Indication: ACUTE LYMPHOCYTIC LEUKAEMIA
     Dosage: 82 MG, UNK
     Route: 042
     Dates: start: 20110311, end: 20110325
  3. VINCRISTINE [Suspect]
     Indication: ACUTE LYMPHOCYTIC LEUKAEMIA
     Dosage: 0.5 MG, A HALF DOSE WAS GIVEN DUE TO PNP
     Route: 042
     Dates: start: 20110311, end: 20110325
  4. EVOLTRA [Suspect]
     Indication: ACUTE LYMPHOCYTIC LEUKAEMIA
     Dosage: 30 MG/M2, UNK
     Route: 065
  5. PREDNISOLONE [Suspect]
     Indication: ACUTE LYMPHOCYTIC LEUKAEMIA
     Dosage: 80 MG, UNK
     Route: 048
     Dates: start: 20110311, end: 20110327
  6. DEXAMETHASONE [Suspect]
     Indication: ACUTE LYMPHOCYTIC LEUKAEMIA
     Dosage: 4 MG, UNK
     Route: 037
     Dates: start: 20110324, end: 20110324
  7. METHOTREXATE [Suspect]
     Indication: ACUTE LYMPHOCYTIC LEUKAEMIA
     Dosage: 15 MG, UNK
     Route: 037
     Dates: start: 20110324, end: 20110324

REACTIONS (1)
  - CHEST PAIN [None]
